FAERS Safety Report 7219883-5 (Version None)
Quarter: 2011Q1

REPORT INFORMATION
  Report Type: 
  Country: None (occurrence: None)
  Receive Date: 20110111
  Receipt Date: 20110105
  Transmission Date: 20110831
  Serious: Yes (Life-Threatening)
  Sender: FDA-Public Use
  Company Number: JP-ROCHE-752105

PATIENT
  Sex: Female

DRUGS (2)
  1. ACTEMRA [Suspect]
     Indication: RHEUMATOID ARTHRITIS
     Route: 041
     Dates: start: 20100127, end: 20100101
  2. ACTEMRA [Suspect]
     Route: 041
     Dates: start: 20101209, end: 20101209

REACTIONS (1)
  - SUBARACHNOID HAEMORRHAGE [None]
